FAERS Safety Report 6073151-6 (Version None)
Quarter: 2009Q1

REPORT INFORMATION
  Report Type: 
  Country: None (occurrence: None)
  Receive Date: 20090206
  Receipt Date: 20090129
  Transmission Date: 20090719
  Serious: Yes (Hospitalization)
  Sender: FDA-Public Use
  Company Number: 2009S1001320

PATIENT
  Sex: Male

DRUGS (1)
  1. FOSFO SODA (SODIUM PHOSPHATE DIBASIC/ SODIUM PHOSPHATE MONOBASIC (ANHY [Suspect]
     Dosage: ORAL_SOL; PO
     Route: 048

REACTIONS (1)
  - BLOOD CREATININE INCREASED [None]
